FAERS Safety Report 9815283 (Version 1)
Quarter: 2014Q1

REPORT INFORMATION
  Report Type: Spontaneous
  Country: US (occurrence: US)
  Receive Date: 20140114
  Receipt Date: 20140114
  Transmission Date: 20141002
  Serious: Yes (Other)
  Sender: FDA-Public Use
  Company Number: US-JNJFOC-20140104900

PATIENT
  Sex: Female

DRUGS (3)
  1. IBUPROFEN [Suspect]
     Route: 065
  2. IBUPROFEN [Suspect]
     Indication: PRODUCT USED FOR UNKNOWN INDICATION
     Route: 065
  3. CELEBREX [Suspect]
     Indication: PRODUCT USED FOR UNKNOWN INDICATION
     Route: 065

REACTIONS (6)
  - Intervertebral disc protrusion [Unknown]
  - Back disorder [Unknown]
  - Oesophageal ulcer [Unknown]
  - Pain [Unknown]
  - Dysstasia [Unknown]
  - Abasia [Unknown]
